FAERS Safety Report 6983589-8 (Version None)
Quarter: 2010Q3

REPORT INFORMATION
  Report Type: 
  Country: None (occurrence: None)
  Receive Date: 20100914
  Receipt Date: 20081020
  Transmission Date: 20110219
  Serious: No
  Sender: FDA-Public Use
  Company Number: US-WYE-H06199208

PATIENT
  Age: 32 Year
  Sex: Female
  Weight: 62.65 kg

DRUGS (2)
  1. ADVIL LIQUI-GELS [Suspect]
     Indication: DYSMENORRHOEA
     Dosage: 2 TO 4 CAPLETS TWICE PER DAY AND HER PHYSICIAN WAS AWARE
     Route: 048
     Dates: start: 20010101
  2. ADVIL LIQUI-GELS [Suspect]
     Indication: HEADACHE

REACTIONS (2)
  - DRUG EFFECT DECREASED [None]
  - PRODUCT QUALITY ISSUE [None]
